FAERS Safety Report 5654277-5 (Version None)
Quarter: 2008Q1

REPORT INFORMATION
  Report Type: 
  Country: None (occurrence: None)
  Receive Date: 20080306
  Receipt Date: 20080116
  Transmission Date: 20080703
  Serious: No
  Sender: FDA-Public Use
  Company Number: US-ABBOTT-08P-163-0436299-00

PATIENT
  Age: 85 Year
  Sex: Female

DRUGS (2)
  1. ZEMPLAR [Suspect]
     Indication: RENAL FAILURE
  2. OLMESARTAN MEDOXOMIL [Concomitant]
     Indication: DRUG USE FOR UNKNOWN INDICATION

REACTIONS (1)
  - HYPONATRAEMIA [None]
